FAERS Safety Report 19492550 (Version 1)
Quarter: 2021Q3

REPORT INFORMATION
  Report Type: Spontaneous
  Country: US (occurrence: US)
  Receive Date: 20210705
  Receipt Date: 20210705
  Transmission Date: 20211014
  Serious: No
  Sender: FDA-Public Use
  Company Number: US-RECKITT BENCKISER HEALTHCARE INT LIMITED-RB-84774-2021

PATIENT
  Sex: Female

DRUGS (1)
  1. MUCINEX DM [Suspect]
     Active Substance: DEXTROMETHORPHAN HYDROBROMIDE\GUAIFENESIN
     Indication: BRONCHIECTASIS
     Dosage: 600 MILLIGRAM, BID
     Route: 065

REACTIONS (3)
  - Somnolence [Not Recovered/Not Resolved]
  - Incorrect product administration duration [Unknown]
  - Decreased appetite [Not Recovered/Not Resolved]
